FAERS Safety Report 14175909 (Version 1)
Quarter: 2017Q4

REPORT INFORMATION
  Report Type: Spontaneous
  Country: None (occurrence: GB)
  Receive Date: 20171109
  Receipt Date: 20171109
  Transmission Date: 20180321
  Serious: Yes (Hospitalization)
  Sender: FDA-Public Use
  Company Number: GB-MEDAC PHARMA, INC.-2033714

PATIENT
  Age: 65 Year
  Sex: Female
  Weight: 96 kg

DRUGS (11)
  1. AMLODIPINE [Suspect]
     Active Substance: AMLODIPINE BESYLATE
  2. ASPIRIN. [Suspect]
     Active Substance: ASPIRIN
  3. FUROSEMIDE. [Suspect]
     Active Substance: FUROSEMIDE
  4. DOXAZOSIN [Suspect]
     Active Substance: DOXAZOSIN\DOXAZOSIN MESYLATE
  5. MELOXICAM. [Suspect]
     Active Substance: MELOXICAM
  6. METHOTREXATE. [Suspect]
     Active Substance: METHOTREXATE
     Indication: RHEUMATOID ARTHRITIS
  7. SIMVASTATIN. [Suspect]
     Active Substance: SIMVASTATIN
  8. SULFASALAZINE. [Suspect]
     Active Substance: SULFASALAZINE
  9. INSULIN GLARGINE [Suspect]
     Active Substance: INSULIN GLARGINE
  10. CERTOLIZUMAB PEGOL [Suspect]
     Active Substance: CERTOLIZUMAB PEGOL
     Route: 058
     Dates: start: 20151216, end: 2016
  11. NOVORAPID [Suspect]
     Active Substance: INSULIN ASPART
     Dates: start: 20151216, end: 201601

REACTIONS (2)
  - Diabetic ketoacidosis [Unknown]
  - Cellulitis [Unknown]

NARRATIVE: CASE EVENT DATE: 20170319
